FAERS Safety Report 5097836-3 (Version None)
Quarter: 2006Q3

REPORT INFORMATION
  Report Type: 
  Country: None (occurrence: None)
  Receive Date: 20060905
  Receipt Date: 20060824
  Transmission Date: 20061208
  Serious: Yes (Death, Hospitalization)
  Sender: FDA-Public Use
  Company Number: HQWYE642116DEC03

PATIENT
  Age: 66 Year
  Sex: Female
  Weight: 48.3 kg

DRUGS (2)
  1. MYLOTARG [Suspect]
     Indication: ACUTE MYELOID LEUKAEMIA
     Dosage: SEE IMAGE
     Route: 042
     Dates: start: 20031029, end: 20031029
  2. MYLOTARG [Suspect]
     Indication: ACUTE MYELOID LEUKAEMIA
     Dosage: SEE IMAGE
     Route: 042
     Dates: start: 20031112, end: 20031112

REACTIONS (12)
  - ACUTE MYELOID LEUKAEMIA [None]
  - CONDITION AGGRAVATED [None]
  - CULTURE URINE POSITIVE [None]
  - DYSPNOEA [None]
  - ENTEROCOCCAL INFECTION [None]
  - HAEMOPTYSIS [None]
  - HYDROPNEUMOTHORAX [None]
  - LEUKAEMIA CUTIS [None]
  - MALIGNANT NEOPLASM PROGRESSION [None]
  - PHARYNGOLARYNGEAL PAIN [None]
  - PLEURAL EFFUSION [None]
  - RESPIRATORY DISTRESS [None]
